FAERS Safety Report 25072118 (Version 1)
Quarter: 2025Q1

REPORT INFORMATION
  Report Type: Spontaneous
  Country: FR (occurrence: FR)
  Receive Date: 20250313
  Receipt Date: 20250313
  Transmission Date: 20250408
  Serious: Yes (Other)
  Sender: IPCA
  Company Number: FR-IPCA LABORATORIES LIMITED-IPC-2025-FR-000561

PATIENT

DRUGS (1)
  1. METFORMIN [Suspect]
     Active Substance: METFORMIN HYDROCHLORIDE
     Indication: Product used for unknown indication
     Route: 065

REACTIONS (4)
  - Lactic acidosis [Unknown]
  - Myocardial infarction [Unknown]
  - Rhabdomyolysis [Unknown]
  - Hyperlactacidaemia [Unknown]
